FAERS Safety Report 7338855-3 (Version None)
Quarter: 2011Q1

REPORT INFORMATION
  Report Type: 
  Country: None (occurrence: None)
  Receive Date: 20110303
  Receipt Date: 20110303
  Transmission Date: 20110831
  Serious: No
  Sender: FDA-Public Use
  Company Number: None

PATIENT
  Age: 34 Year
  Sex: Male
  Weight: 81.6475 kg

DRUGS (1)
  1. LAMISIL [Suspect]
     Indication: ONYCHOMYCOSIS
     Dosage: 1 PILL 1 DAILY ORAL LAST TWO WEEKS
     Route: 048

REACTIONS (4)
  - DYSPEPSIA [None]
  - POLLAKIURIA [None]
  - URINE OUTPUT INCREASED [None]
  - MICTURITION URGENCY [None]
